FAERS Safety Report 9403894 (Version 1)
Quarter: 2013Q3

REPORT INFORMATION
  Report Type: Spontaneous
  Country: GB (occurrence: None)
  Receive Date: 20130712
  Receipt Date: 20130712
  Transmission Date: 20140515
  Serious: Yes (Life-Threatening, Hospitalization, Other)
  Sender: FDA-Public Use
  Company Number: AUR-APL-2013-05766

PATIENT
  Age: 34 Year
  Sex: Female

DRUGS (3)
  1. QUETIAPINE [Suspect]
     Indication: POSTPARTUM DEPRESSION
     Route: 048
  2. ALVERINE (ALVERINE) [Concomitant]
  3. SOTALOL [Concomitant]

REACTIONS (1)
  - Electrocardiogram QT prolonged [None]
